FAERS Safety Report 10794266 (Version 1)
Quarter: 2015Q1

REPORT INFORMATION
  Report Type: Spontaneous
  Country: FR (occurrence: FR)
  Receive Date: 20150213
  Receipt Date: 20150213
  Transmission Date: 20150721
  Serious: Yes (Other)
  Sender: FDA-Public Use
  Company Number: FR-PFIZER INC-2015051739

PATIENT
  Sex: Male

DRUGS (1)
  1. LYRICA [Suspect]
     Active Substance: PREGABALIN
     Indication: PAIN
     Dosage: UNK

REACTIONS (63)
  - Dizziness [Unknown]
  - Fatigue [Unknown]
  - Peripheral swelling [Unknown]
  - Pain in extremity [Unknown]
  - Chills [Unknown]
  - Muscle twitching [Unknown]
  - Drug ineffective [Unknown]
  - Extraocular muscle paresis [Unknown]
  - Seizure [Unknown]
  - Increased appetite [Unknown]
  - Memory impairment [Unknown]
  - Chest discomfort [Unknown]
  - Oscillopsia [Unknown]
  - Hypokinesia [Unknown]
  - Disturbance in attention [Unknown]
  - Speech disorder [Unknown]
  - Vision blurred [Unknown]
  - Vertigo [Unknown]
  - Balance disorder [Unknown]
  - Heart rate increased [Unknown]
  - Dyspnoea [Unknown]
  - Joint swelling [Unknown]
  - Myalgia [Unknown]
  - Asthenia [Unknown]
  - Headache [Unknown]
  - Clumsiness [Unknown]
  - Amnesia [Unknown]
  - Hypoaesthesia [Unknown]
  - Swelling [Unknown]
  - Back pain [Unknown]
  - Blood glucose increased [Unknown]
  - Mood swings [Unknown]
  - Cognitive disorder [Unknown]
  - Pruritus [Unknown]
  - Visual brightness [Unknown]
  - Dysgraphia [Unknown]
  - Ascites [Unknown]
  - Somnolence [Unknown]
  - Tremor [Unknown]
  - Dizziness postural [Unknown]
  - Musculoskeletal stiffness [Unknown]
  - Platelet count decreased [Unknown]
  - Rhinorrhoea [Unknown]
  - Cough [Unknown]
  - Dysphagia [Unknown]
  - White blood cell count decreased [Unknown]
  - Loss of consciousness [Unknown]
  - Blindness [Unknown]
  - Arrhythmia [Unknown]
  - Fall [Unknown]
  - Lacrimation increased [Unknown]
  - Parosmia [Unknown]
  - Irritability [Unknown]
  - Arthralgia [Unknown]
  - Depression [Unknown]
  - Visual impairment [Unknown]
  - Hyporeflexia [Unknown]
  - Ageusia [Unknown]
  - Neck pain [Unknown]
  - Abnormal behaviour [Unknown]
  - Diplopia [Unknown]
  - Feeling drunk [Unknown]
  - Gait disturbance [Unknown]
